FAERS Safety Report 19456929 (Version 1)
Quarter: 2021Q2

REPORT INFORMATION
  Report Type: Spontaneous
  Country: US (occurrence: US)
  Receive Date: 20210624
  Receipt Date: 20210624
  Transmission Date: 20210717
  Serious: Yes (Hospitalization)
  Sender: FDA-Public Use
  Company Number: US-STRIDES ARCOLAB LIMITED-2020SP012100

PATIENT
  Age: 79 Year
  Sex: Male

DRUGS (1)
  1. HYDRALAZINE HCL [Suspect]
     Active Substance: HYDRALAZINE HYDROCHLORIDE
     Indication: ESSENTIAL HYPERTENSION
     Dosage: 25 MILLIGRAM, BID
     Route: 065
     Dates: start: 201610, end: 201611

REACTIONS (4)
  - Proteinuria [Recovered/Resolved]
  - Lupus nephritis [Recovered/Resolved]
  - Haematuria [Recovered/Resolved]
  - Glomerulonephritis proliferative [Recovered/Resolved]

NARRATIVE: CASE EVENT DATE: 201611
